FAERS Safety Report 6126384-4 (Version None)
Quarter: 2009Q1

REPORT INFORMATION
  Report Type: 
  Country: None (occurrence: None)
  Receive Date: 20090318
  Receipt Date: 20090303
  Transmission Date: 20090719
  Serious: Yes (Life-Threatening, Hospitalization)
  Sender: FDA-Public Use
  Company Number: 09P-062-0560095-00

PATIENT
  Age: 1 Year
  Sex: Male
  Weight: 10.2 kg

DRUGS (7)
  1. SYNAGIS [Suspect]
     Indication: IMMUNISATION
     Dosage: 150 MG, 1 IN 1 M, INTRAMUSCULAR
     Route: 030
     Dates: start: 20090209
  2. FUROSEMIDE (TABLETS) (FUROSEMIDE) [Concomitant]
  3. SPIRONOLACTONE [Concomitant]
  4. CARVEDILOL (TABLETS) CARVEDILOL [Concomitant]
  5. ACETYLCYSTEINE (TABLETS) ACETYLCYSTEINE [Concomitant]
  6. ACETYLSALICYLIC ACID (TABLETS) ACETYLSALICYLIC ACID [Concomitant]
  7. LEVOTHYROXINE (SYRUP) LEVOTHYROXINE [Concomitant]

REACTIONS (2)
  - RESPIRATORY ARREST [None]
  - RESPIRATORY FAILURE [None]
